FAERS Safety Report 5349053-7 (Version None)
Quarter: 2007Q2

REPORT INFORMATION
  Report Type: 
  Country: None (occurrence: None)
  Receive Date: 20070516
  Receipt Date: 20070326
  Transmission Date: 20071010
  Serious: No
  Sender: FDA-Public Use
  Company Number: 200710915US

PATIENT
  Age: 29 Year
  Sex: Female
  Weight: 79 kg

DRUGS (8)
  1. APIDRA [Suspect]
     Dates: start: 20060901
  2. SYMLIN [Concomitant]
  3. ROSUVASTATIN (CRESTOR /01588601/) [Concomitant]
  4. TOPROL-XL [Concomitant]
  5. ETHINYLESTRADIOL, DESOGESTREL (APRI) [Concomitant]
  6. QUINAPRIL [Concomitant]
  7. MULTI-VITAMIN [Concomitant]
  8. INSULIN LISPRO [Concomitant]

REACTIONS (3)
  - NIGHT SWEATS [None]
  - PALPITATIONS [None]
  - TACHYCARDIA [None]
